FAERS Safety Report 9921386 (Version 3)
Quarter: 2014Q1

REPORT INFORMATION
  Report Type: Report from Study
  Country: CA (occurrence: CA)
  Receive Date: 20140225
  Receipt Date: 20140317
  Transmission Date: 20141002
  Serious: Yes (Hospitalization, Other)
  Sender: FDA-Public Use
  Company Number: CA-JNJFOC-20140207991

PATIENT
  Age: 63 Year
  Sex: Male
  Weight: 97.1 kg

DRUGS (7)
  1. REMICADE [Suspect]
     Indication: CROHN^S DISEASE
     Dosage: INFUSION NUMBER 34
     Route: 042
     Dates: start: 20140311
  2. REMICADE [Suspect]
     Indication: CROHN^S DISEASE
     Route: 042
     Dates: start: 20140212
  3. REMICADE [Suspect]
     Indication: CROHN^S DISEASE
     Route: 042
     Dates: start: 200901
  4. IMURAN [Concomitant]
     Route: 065
  5. METFORMIN [Concomitant]
     Route: 065
  6. DIAMICRON [Concomitant]
     Route: 065
  7. VICTOZA [Concomitant]
     Route: 065

REACTIONS (4)
  - Rib fracture [Recovering/Resolving]
  - Crohn^s disease [Recovered/Resolved]
  - Fall [Recovering/Resolving]
  - Excoriation [Recovering/Resolving]
